FAERS Safety Report 6013843-8 (Version None)
Quarter: 2008Q4

REPORT INFORMATION
  Report Type: 
  Country: None (occurrence: None)
  Receive Date: 20081218
  Receipt Date: 20081218
  Transmission Date: 20090506
  Serious: Yes (Hospitalization)
  Sender: FDA-Public Use
  Company Number: None

PATIENT
  Age: 71 Year
  Sex: Female
  Weight: 58 kg

DRUGS (1)
  1. PROCARBAZINE [Suspect]
     Indication: HODGKIN'S DISEASE
     Dosage: 150MG DAILYX14 DAY PO
     Route: 048
     Dates: start: 20080515, end: 20080612

REACTIONS (1)
  - PNEUMONITIS [None]
